FAERS Safety Report 8551584-3 (Version None)
Quarter: 2012Q3

REPORT INFORMATION
  Report Type: 
  Country: None (occurrence: None)
  Receive Date: 20120730
  Receipt Date: 20120724
  Transmission Date: 20120928
  Serious: Yes (Hospitalization)
  Sender: FDA-Public Use
  Company Number: JP-EISAI INC-E2090-02153-SPO-JP

PATIENT
  Sex: Male

DRUGS (1)
  1. ZONISAMIDE [Suspect]
     Indication: EPILEPSY
     Route: 048
     Dates: start: 20120510, end: 20120524

REACTIONS (2)
  - HISTIOCYTOSIS HAEMATOPHAGIC [None]
  - HEPATIC FUNCTION ABNORMAL [None]
